FAERS Safety Report 13098802 (Version 7)
Quarter: 2017Q2

REPORT INFORMATION
  Report Type: Spontaneous
  Country: US (occurrence: US)
  Receive Date: 20170109
  Receipt Date: 20170414
  Transmission Date: 20170830
  Serious: Yes (Hospitalization)
  Sender: FDA-Public Use
  Company Number: US-JNJFOC-20161209233

PATIENT
  Age: 65 Year
  Sex: Female
  Weight: 61.24 kg

DRUGS (15)
  1. LEVAQUIN [Suspect]
     Active Substance: LEVOFLOXACIN
     Indication: PAIN
     Dosage: DOSE:150 ML OVER 45 MIN
     Route: 042
  2. VITAMIN D3 [Concomitant]
     Active Substance: CHOLECALCIFEROL
     Route: 065
  3. SYMBICORT [Concomitant]
     Active Substance: BUDESONIDE\FORMOTEROL FUMARATE DIHYDRATE
     Indication: ASTHMA
     Dosage: 2 PUFFS IN AM, 2 PUFFS AT NIGHT, NEBULIZER.
     Route: 065
     Dates: start: 20161002
  4. XARELTO [Suspect]
     Active Substance: RIVAROXABAN
     Indication: DEEP VEIN THROMBOSIS
     Route: 048
     Dates: start: 201612
  5. SINGULAIR [Concomitant]
     Active Substance: MONTELUKAST SODIUM
     Indication: ASTHMA
     Dosage: INHALER
     Route: 055
     Dates: start: 20161002
  6. PROPRANOLOL [Concomitant]
     Active Substance: PROPRANOLOL HYDROCHLORIDE
     Indication: MITRAL VALVE PROLAPSE
     Route: 048
     Dates: start: 1980
  7. PROPRANOLOL [Concomitant]
     Active Substance: PROPRANOLOL HYDROCHLORIDE
     Indication: ARRHYTHMIA
     Route: 048
     Dates: start: 1980
  8. ACETAMINOPHEN. [Concomitant]
     Active Substance: ACETAMINOPHEN
     Indication: PAIN
     Dosage: FREQUENCY= AS NEEDED
     Route: 065
  9. PHENOBARBITAL. [Concomitant]
     Active Substance: PHENOBARBITAL
     Indication: SEIZURE
     Dosage: 30 MG IN AM, 60 MG AT LUNCH, 60 MG AFTER??SUPPER, 30 MG AT BEDTIME
     Route: 048
     Dates: start: 1971
  10. XARELTO [Suspect]
     Active Substance: RIVAROXABAN
     Indication: DEEP VEIN THROMBOSIS
     Route: 048
     Dates: start: 20161205, end: 201612
  11. XARELTO [Suspect]
     Active Substance: RIVAROXABAN
     Indication: DEEP VEIN THROMBOSIS
     Route: 048
     Dates: start: 201612
  12. PROPRANOLOL [Concomitant]
     Active Substance: PROPRANOLOL HYDROCHLORIDE
     Indication: MITRAL VALVE PROLAPSE
     Route: 048
  13. PROPRANOLOL [Concomitant]
     Active Substance: PROPRANOLOL HYDROCHLORIDE
     Indication: ARRHYTHMIA
     Route: 048
  14. XARELTO [Suspect]
     Active Substance: RIVAROXABAN
     Indication: DEEP VEIN THROMBOSIS
     Route: 048
     Dates: start: 20161205, end: 201612
  15. DIAZEPAM. [Concomitant]
     Active Substance: DIAZEPAM
     Indication: SEIZURE
     Route: 048
     Dates: start: 1971

REACTIONS (25)
  - Cellulitis [Not Recovered/Not Resolved]
  - Venous thrombosis limb [Unknown]
  - Dyspnoea [Unknown]
  - Blood urine present [Not Recovered/Not Resolved]
  - Soft tissue injury [Not Recovered/Not Resolved]
  - Pulmonary embolism [Unknown]
  - Gingival bleeding [Not Recovered/Not Resolved]
  - Headache [Not Recovered/Not Resolved]
  - Asthma [Recovered/Resolved]
  - Epistaxis [Not Recovered/Not Resolved]
  - Blood creatine increased [Recovered/Resolved]
  - Wheezing [Unknown]
  - Pallor [Not Recovered/Not Resolved]
  - Pain [Unknown]
  - Peripheral arterial occlusive disease [Unknown]
  - Pain in extremity [Not Recovered/Not Resolved]
  - Body temperature decreased [Unknown]
  - Thrombosis [Unknown]
  - Chest discomfort [Unknown]
  - Stridor [Unknown]
  - Heart rate increased [Unknown]
  - Angioedema [Unknown]
  - Occult blood positive [Not Recovered/Not Resolved]
  - Chills [Not Recovered/Not Resolved]
  - Platelet count increased [Unknown]

NARRATIVE: CASE EVENT DATE: 201612
